FAERS Safety Report 22131982 (Version 2)
Quarter: 2023Q2

REPORT INFORMATION
  Report Type: Report from Study
  Country: US (occurrence: US)
  Receive Date: 20230323
  Receipt Date: 20230404
  Transmission Date: 20230722
  Serious: Yes (Other)
  Sender: FDA-Public Use
  Company Number: US-002147023-NVSC2023US062378

PATIENT
  Age: 42 Year
  Sex: Male
  Weight: 116.12 kg

DRUGS (3)
  1. METHOTREXATE [Suspect]
     Active Substance: METHOTREXATE
     Indication: Psoriasis
     Dosage: UNK
     Route: 065
  2. OLMESARTAN [Suspect]
     Active Substance: OLMESARTAN
     Indication: Psoriasis
     Dosage: UNK
     Route: 065
  3. ALBUTEROL SULFATE [Suspect]
     Active Substance: ALBUTEROL SULFATE
     Indication: Psoriasis
     Dosage: UNK
     Route: 065

REACTIONS (20)
  - Psoriatic arthropathy [Unknown]
  - Pneumonia [Unknown]
  - Swelling [Unknown]
  - Tenderness [Unknown]
  - Nail disorder [Unknown]
  - Arthritis [Unknown]
  - Joint swelling [Unknown]
  - Gait disturbance [Unknown]
  - Meniscal degeneration [Unknown]
  - Joint effusion [Unknown]
  - Neurological symptom [Unknown]
  - Nail dystrophy [Unknown]
  - Dactylitis [Unknown]
  - Enthesopathy [Unknown]
  - Effusion [Unknown]
  - Speech disorder [Unknown]
  - Pain in extremity [Unknown]
  - Arthralgia [Unknown]
  - Product use in unapproved indication [Unknown]
  - Drug ineffective [Unknown]

NARRATIVE: CASE EVENT DATE: 20220810
